FAERS Safety Report 8321265-X (Version None)
Quarter: 2012Q2

REPORT INFORMATION
  Report Type: 
  Country: None (occurrence: None)
  Receive Date: 20120430
  Receipt Date: 20120420
  Transmission Date: 20120825
  Serious: Yes (Life-Threatening)
  Sender: FDA-Public Use
  Company Number: JP-BRISTOL-MYERS SQUIBB COMPANY-16504433

PATIENT
  Age: 47 Year
  Sex: Male

DRUGS (16)
  1. ALPRAZOLAM [Concomitant]
     Dosage: TABLET
  2. PAXIL [Concomitant]
     Dosage: TABLET
  3. HALCION [Concomitant]
     Dosage: TABLET
  4. PROMETHAZINE HCL [Concomitant]
  5. MUCOSTA [Concomitant]
     Dates: start: 20110805
  6. TRIHEXYPHENIDYL HCL [Concomitant]
     Dosage: TABLET
  7. MIRTAZAPINE [Concomitant]
     Dosage: TABLET
     Dates: start: 20101201
  8. RISPERDAL [Concomitant]
     Dosage: ORAL SOLUTION
     Dates: start: 20101201
  9. ABILIFY [Suspect]
     Indication: SCHIZOPHRENIA
     Dosage: 6MG:18JAN12-31JAN12, 12MG:01FEB12-ONG.
     Route: 048
     Dates: start: 20120118
  10. PENTOBARBITAL CALCIUM [Concomitant]
     Dosage: TABLET
  11. FLUNITRAZEPAM [Concomitant]
     Dosage: TABLET
  12. LEVOMEPROMAZINE MALEATE [Concomitant]
  13. AMOBAN [Concomitant]
     Dosage: TABLET
  14. LORAZEPAM [Concomitant]
     Dates: start: 20120209
  15. CYMBALTA [Concomitant]
     Dosage: CAPS
     Dates: start: 20110630
  16. FERROUS CITRATE [Concomitant]
     Dates: start: 20110805

REACTIONS (1)
  - ASPHYXIA [None]
